FAERS Safety Report 21295410 (Version 1)
Quarter: 2022Q3

REPORT INFORMATION
  Report Type: Report from Study
  Country: RO (occurrence: RO)
  Receive Date: 20220905
  Receipt Date: 20220905
  Transmission Date: 20221026
  Serious: Yes (Hospitalization)
  Sender: FDA-Public Use
  Company Number: RO-ABBVIE-22K-135-4525751-00

PATIENT
  Age: 46 Year
  Sex: Male

DRUGS (9)
  1. SKYRIZI [Suspect]
     Active Substance: RISANKIZUMAB-RZAA
     Indication: Psoriasis
     Route: 058
     Dates: start: 20210215, end: 20220527
  2. TRAMADOL [Concomitant]
     Active Substance: TRAMADOL
     Indication: Bone pain
     Dosage: WHEN NEEDED?PRIOR TO SKYRIZI THERAPY
     Route: 048
  3. TRAMADOL [Concomitant]
     Active Substance: TRAMADOL
     Indication: Arthralgia
  4. NUROFEN FORTE [Concomitant]
     Indication: Bone pain
     Dosage: WHEN NEEDED?PRIOR TO SKYRIZI THERAPY
     Route: 048
  5. NUROFEN FORTE [Concomitant]
     Indication: Arthralgia
  6. AMLODIPINE BESYLATE\OLMESARTAN MEDOXOMIL [Concomitant]
     Active Substance: AMLODIPINE BESYLATE\OLMESARTAN MEDOXOMIL
     Indication: Blood pressure fluctuation
     Dosage: PRIOR TO SKYRIZI THERAPY
     Route: 048
  7. AMLODIPINE BESYLATE\OLMESARTAN MEDOXOMIL [Concomitant]
     Active Substance: AMLODIPINE BESYLATE\OLMESARTAN MEDOXOMIL
     Indication: Hypertension
  8. ASPIRIN [Concomitant]
     Active Substance: ASPIRIN
     Indication: Blood pressure fluctuation
     Route: 048
  9. ASPIRIN [Concomitant]
     Active Substance: ASPIRIN
     Indication: Hypertension

REACTIONS (1)
  - Nephrolithiasis [Unknown]
